FAERS Safety Report 8588925-7 (Version None)
Quarter: 2012Q3

REPORT INFORMATION
  Report Type: 
  Country: None (occurrence: None)
  Receive Date: 20120813
  Receipt Date: 20120805
  Transmission Date: 20120928
  Serious: Yes (Other)
  Sender: FDA-Public Use
  Company Number: US-RB-043325-12

PATIENT
  Age: 14 Year
  Sex: Male

DRUGS (2)
  1. DELSYM CHILDREN'S ORANGE [Suspect]
     Indication: DRUG ABUSE
     Dosage: CONSUMED ONE 5OZ  BOTTLE
     Route: 048
     Dates: start: 20120804
  2. PROZAC [Concomitant]
     Indication: PRODUCT USED FOR UNKNOWN INDICATION

REACTIONS (2)
  - INTENTIONAL OVERDOSE [None]
  - DRUG ABUSE [None]
